FAERS Safety Report 9391058 (Version 1)
Quarter: 2013Q3

REPORT INFORMATION
  Report Type: Spontaneous
  Country: US (occurrence: None)
  Receive Date: 20130705
  Receipt Date: 20130705
  Transmission Date: 20140515
  Serious: Yes (Other)
  Sender: FDA-Public Use
  Company Number: None

PATIENT
  Age: 56 Year
  Sex: Female
  Weight: 111.59 kg

DRUGS (11)
  1. RECLAST [Suspect]
     Indication: OSTEOPOROSIS
     Dosage: 12 MONTHS
     Route: 042
     Dates: start: 20130702, end: 20130702
  2. COUMADIN [Concomitant]
  3. MACRODANTIN [Concomitant]
  4. LIPITOR [Concomitant]
  5. COZAAR [Concomitant]
  6. ZYRTEC [Concomitant]
  7. NEXIUM [Concomitant]
  8. SYNTHROID [Concomitant]
  9. FEMARA [Concomitant]
  10. AMBIEN [Concomitant]
  11. RESTASIS [Concomitant]

REACTIONS (10)
  - Myalgia [None]
  - Headache [None]
  - Bone pain [None]
  - Pyrexia [None]
  - Chest discomfort [None]
  - Cough [None]
  - Abdominal pain [None]
  - Nausea [None]
  - Tenderness [None]
  - Insomnia [None]
